FAERS Safety Report 9255692 (Version 1)
Quarter: 2013Q2

REPORT INFORMATION
  Report Type: Spontaneous
  Country: DE (occurrence: DE)
  Receive Date: 20130425
  Receipt Date: 20130425
  Transmission Date: 20140414
  Serious: Yes (Life-Threatening, Hospitalization)
  Sender: FDA-Public Use
  Company Number: GXKR2012DE002940

PATIENT
  Sex: 0

DRUGS (16)
  1. METFORMIN [Suspect]
     Indication: TYPE 2 DIABETES MELLITUS
     Dosage: 850 MG, BID
     Route: 048
     Dates: start: 2010
  2. ACETYLSALICYLIC ACID [Concomitant]
     Dosage: 1-0-0
     Route: 048
  3. FURORESE [Concomitant]
     Dosage: 1-1-0
     Route: 048
  4. HYDROCHLOROTHIAZIDE [Concomitant]
     Dosage: 1-0-0
     Route: 048
  5. CAPTOPRIL [Concomitant]
     Dosage: 1-0-0
     Route: 048
  6. GLIMEPIRIDE [Concomitant]
     Dosage: 1-0-0
     Route: 048
  7. NEURO-RATIOPHARM FILMTABLETTEN [Concomitant]
     Dosage: 1-0-0
     Route: 048
  8. ZOPICLONE [Concomitant]
     Dosage: 1-0-0
     Route: 048
  9. FENISTIL-RETARD [Concomitant]
     Dosage: 0-0-0-1
     Route: 048
  10. CEFUROXIME [Concomitant]
     Dosage: 1-0-1
     Route: 048
  11. RAMIPRIL [Concomitant]
     Dosage: 10 MG, QD
     Route: 048
  12. ACTRAPHANE [Concomitant]
     Dosage: 15-3-8 IU
     Route: 058
  13. BISOPROLOL [Concomitant]
     Dosage: 2.5 MG, QD
  14. FURORESE [Concomitant]
     Dosage: 20 MG, QD
     Route: 048
  15. NOVALGIN                                /SWE/ [Concomitant]
     Dosage: 30 DRP, TID
     Route: 048
  16. NITRENDIPIN [Concomitant]
     Dosage: 10 MG, BID
     Route: 048

REACTIONS (3)
  - Lactic acidosis [Recovered/Resolved]
  - Renal failure acute [Recovered/Resolved]
  - Hyperkalaemia [Recovered/Resolved]
